FAERS Safety Report 23827963 (Version 3)
Quarter: 2024Q3

REPORT INFORMATION
  Report Type: Report from Study
  Country: US (occurrence: US)
  Receive Date: 20240507
  Receipt Date: 20240911
  Transmission Date: 20241016
  Serious: Yes (Disabling)
  Sender: ABBVIE
  Company Number: US-ABBVIE-4729875

PATIENT
  Age: 73 Year
  Sex: Male

DRUGS (12)
  1. VENCLEXTA [Suspect]
     Active Substance: VENETOCLAX
     Indication: Acute myeloid leukaemia
     Dosage: TAKE 1 TABLET BY MOUTH ONCE DAILY WITH FOOD AND A FULL GLASS OF WATER, FORM STRENGTH: 50 MILLIGRAM
     Route: 048
     Dates: start: 20230413
  2. VENCLEXTA [Suspect]
     Active Substance: VENETOCLAX
     Indication: Acute myeloid leukaemia
     Dosage: TAKE 1 TABLET BY MOUTH DAILY FOR 14 DAYS EVERY 28 DAY(S) OR AS DIRECTED?FORM STRENGTH: 50 MILLIGRAM
     Route: 048
     Dates: start: 202408
  3. COREG [Concomitant]
     Active Substance: CARVEDILOL
     Indication: Product used for unknown indication
     Dosage: 12.5 MG ORAL TABLET?FREQUENCY TEXT: 1 TABLET ORAL TWICE DAILY WITH MEALS
     Route: 048
  4. GUAIFENESIN [Concomitant]
     Active Substance: GUAIFENESIN
     Indication: Respiratory tract congestion
     Dosage: 400 MG ORAL TABLET?FREQUENCY TEXT: 1 TABLET ORAL TWICE DAILY AS NEEDED
     Route: 048
  5. VORICONAZOLE [Concomitant]
     Active Substance: VORICONAZOLE
     Indication: Product used for unknown indication
     Dosage: 200 MG ORAL TABLET?FREQUENCY TEXT: 1 TABLET ORAL EVERY 12 HOURS
     Route: 048
  6. OMEPRAZOLE [Concomitant]
     Active Substance: OMEPRAZOLE
     Indication: Product used for unknown indication
     Dosage: 40 MG DELAYED RELEASE CAPSULE ORAL?FREQUENCY TEXT: 1 CAPSULE ORAL DAILY
     Route: 048
  7. LEVOFLOXACIN [Concomitant]
     Active Substance: LEVOFLOXACIN
     Indication: Product used for unknown indication
     Dosage: FORM STRENGTH: 500 MILLIGRAM
     Route: 048
  8. NORCO [Concomitant]
     Active Substance: ACETAMINOPHEN\HYDROCODONE BITARTRATE
     Indication: Pain
     Dosage: 10 MG-325 MG TABLET?FREQUENCY TEXT: ORAL EVERY 6 HOURS AS NEEDED
     Route: 048
  9. FERROUS SULFATE [Concomitant]
     Active Substance: FERROUS SULFATE
     Indication: Product used for unknown indication
     Dosage: 325 MG (65 MG ELEMENTAL IRON TABLET)?FREQUENCY TEXT: 1 TABLET ORAL DAILY BEFORE DINNER
     Route: 048
  10. ACYCLOVIR [Concomitant]
     Active Substance: ACYCLOVIR
     Indication: Product used for unknown indication
     Dosage: 400 MG TABLET?FREQUENCY TEXT: 1 TABLET ORAL TWICE DAILY
     Route: 048
  11. DOCUSATE SODIUM [Concomitant]
     Active Substance: DOCUSATE SODIUM
     Indication: Constipation
     Dosage: 100 MG ORAL CAPSULE?FREQUENCY TEXT: 1 CAPSULE ORAL TWICE DAILY AS NEEDED
     Route: 048
  12. ZOFRAN [Concomitant]
     Active Substance: ONDANSETRON HYDROCHLORIDE
     Indication: Product used for unknown indication
     Dosage: 4 MG ORAL TABLET?FREQUENCY TEXT: 1 TABLET ORAL TWICE DAILY AS NEEDED
     Route: 048

REACTIONS (8)
  - Disability [Unknown]
  - Back pain [Unknown]
  - Off label use [Not Recovered/Not Resolved]
  - Infection [Unknown]
  - Back disorder [Unknown]
  - Confusional state [Not Recovered/Not Resolved]
  - Musculoskeletal disorder [Not Recovered/Not Resolved]
  - Off label use [Not Recovered/Not Resolved]

NARRATIVE: CASE EVENT DATE: 20230413
